FAERS Safety Report 21800774 (Version 1)
Quarter: 2022Q4

REPORT INFORMATION
  Report Type: Report from Study
  Country: US (occurrence: US)
  Receive Date: 20221230
  Receipt Date: 20221230
  Transmission Date: 20230113
  Serious: No
  Sender: FDA-Public Use
  Company Number: US-ABBVIE-4222135

PATIENT
  Sex: Male

DRUGS (2)
  1. HUMIRA [Suspect]
     Active Substance: ADALIMUMAB
     Indication: Psoriatic arthropathy
     Dosage: THE ONSET DATES FOR EVENT SKIN CRACKED, FOOT ULCER AND FOOT CALLUS WAS 2022.
     Route: 058
     Dates: start: 20221025
  2. HUMIRA [Suspect]
     Active Substance: ADALIMUMAB
     Indication: Psoriasis

REACTIONS (3)
  - Skin ulcer [Not Recovered/Not Resolved]
  - Skin fissures [Not Recovered/Not Resolved]
  - Hyperkeratosis [Not Recovered/Not Resolved]
